FAERS Safety Report 21464042 (Version 1)
Quarter: 2022Q4

REPORT INFORMATION
  Report Type: Report from Study
  Country: BE (occurrence: BE)
  Receive Date: 20221017
  Receipt Date: 20221017
  Transmission Date: 20230113
  Serious: Yes (Hospitalization)
  Sender: FDA-Public Use
  Company Number: BE-TAKEDA-2022TUS070739

PATIENT
  Age: 35 Year
  Sex: Female

DRUGS (3)
  1. REMICADE [Suspect]
     Active Substance: INFLIXIMAB
     Indication: Crohn^s disease
     Dosage: 5 MILLIGRAM/KILOGRAM, Q6WEEKS
     Route: 041
     Dates: start: 20140401, end: 20170906
  2. METHOTREXATE [Suspect]
     Active Substance: METHOTREXATE
     Indication: Crohn^s disease
     Dosage: 15 MILLIGRAM, 1/WEEK
     Route: 058
     Dates: start: 20040301, end: 20170804
  3. VEDOLIZUMAB [Suspect]
     Active Substance: VEDOLIZUMAB
     Indication: Crohn^s disease
     Dosage: 300 MILLIGRAM, Q2WEEKS
     Route: 042
     Dates: start: 20170906

REACTIONS (2)
  - Crohn^s disease [Recovered/Resolved with Sequelae]
  - Decreased appetite [Recovering/Resolving]
